FAERS Safety Report 4518724-4 (Version None)
Quarter: 2004Q4

REPORT INFORMATION
  Report Type: 
  Country: None (occurrence: None)
  Receive Date: 20041201
  Receipt Date: 20041117
  Transmission Date: 20050328
  Serious: Yes (Death, Hospitalization)
  Sender: FDA-Public Use
  Company Number: FABR-10869

PATIENT
  Age: 76 Year
  Sex: Female
  Weight: 77 kg

DRUGS (11)
  1. FABRAZYME [Suspect]
     Indication: FABRY'S DISEASE
     Dosage: 70 MG Q2WKS IV
     Route: 042
     Dates: start: 20040211
  2. RENAGEL [Concomitant]
  3. PRAVACHOL [Concomitant]
  4. LEVOXYL [Concomitant]
  5. NORVASC [Concomitant]
  6. NEPHROVITE [Concomitant]
  7. BUMEX [Concomitant]
  8. AVAPRO [Concomitant]
  9. ALLEGRA [Concomitant]
  10. COMBIVENT [Concomitant]
  11. ACTONEL [Concomitant]

REACTIONS (2)
  - ARTERIOVENOUS FISTULA SITE COMPLICATION [None]
  - CELLULITIS [None]
